FAERS Safety Report 8221614-7 (Version None)
Quarter: 2012Q1

REPORT INFORMATION
  Report Type: 
  Country: None (occurrence: None)
  Receive Date: 20120315
  Receipt Date: 20120305
  Transmission Date: 20120608
  Serious: Yes (Life-Threatening, Hospitalization)
  Sender: FDA-Public Use
  Company Number: 2011SP059397

PATIENT
  Age: 32 Year
  Sex: Female
  Weight: 64.8644 kg

DRUGS (1)
  1. IMPLANON [Suspect]
     Indication: CONTRACEPTION
     Dosage: 1 DF;  SBDE
     Route: 059
     Dates: start: 20110705, end: 20111215

REACTIONS (4)
  - SUICIDE ATTEMPT [None]
  - MOOD SWINGS [None]
  - ANXIETY [None]
  - DEPRESSION [None]
